FAERS Safety Report 5247209-5 (Version None)
Quarter: 2007Q1

REPORT INFORMATION
  Report Type: 
  Country: None (occurrence: None)
  Receive Date: 20070220
  Receipt Date: 20070205
  Transmission Date: 20070707
  Serious: Yes (Death, Other)
  Sender: FDA-Public Use
  Company Number: 2007US-05672

PATIENT
  Age: 73 Year
  Sex: Male

DRUGS (1)
  1. CEFUROXIME AXETIL [Suspect]
     Indication: INFLUENZA
     Dosage: ORAL
     Route: 048
     Dates: start: 20070115, end: 20070115

REACTIONS (3)
  - BRONCHIAL OEDEMA [None]
  - OBSTRUCTIVE AIRWAYS DISORDER [None]
  - RESPIRATORY TRACT INFECTION [None]
